FAERS Safety Report 12532298 (Version 2)
Quarter: 2016Q3

REPORT INFORMATION
  Report Type: Report from Study
  Country: GB (occurrence: GB)
  Receive Date: 20160706
  Receipt Date: 20160804
  Transmission Date: 20161109
  Serious: Yes (Life-Threatening, Hospitalization, Other)
  Sender: FDA-Public Use
  Company Number: GB-SYNAGEVA BIOPHARMA CORP.-A201604978

PATIENT
  Age: 2 Month
  Sex: Female
  Weight: 5.38 kg

DRUGS (25)
  1. CHLORPHENAMINE [Concomitant]
     Active Substance: CHLORPHENIRAMINE MALEATE
     Indication: ANAPHYLACTIC REACTION
     Dosage: 1.25 MG, SINGLE
     Route: 042
     Dates: start: 20160622, end: 20160622
  2. ABIDEC [Concomitant]
     Indication: VITAMIN SUPPLEMENTATION
     Dosage: 0.3 ML, SINGLE
     Route: 048
     Dates: start: 20160518
  3. CHIROCAINE                         /01499501/ [Concomitant]
     Indication: CATHETER PLACEMENT
     Dosage: 12.5 MG, SINGLE
     Route: 042
     Dates: start: 20160612, end: 20160612
  4. MEDIHONEY [Concomitant]
     Active Substance: HONEY
     Indication: SKIN ULCER
     Dosage: 1 DROP, QID
     Route: 061
     Dates: start: 20160526
  5. HYDROCORTISONE. [Concomitant]
     Active Substance: HYDROCORTISONE
     Indication: PROPHYLAXIS
     Dosage: 25 MG, SINGLE
     Route: 042
     Dates: start: 20160629, end: 20160629
  6. ROCURONIUM [Concomitant]
     Active Substance: ROCURONIUM BROMIDE
     Indication: CATHETER PLACEMENT
     Dosage: 3 MG, SINGLE
     Route: 042
     Dates: start: 20160612, end: 20160612
  7. RETINOL [Concomitant]
     Active Substance: RETINOL
     Indication: VITAMIN A DEFICIENCY
     Dosage: 5000 IU, QD
     Route: 048
     Dates: start: 20160527
  8. OMEPRAZOLE. [Concomitant]
     Active Substance: OMEPRAZOLE
     Indication: ANTACID THERAPY
     Dosage: 5 MG, QD
     Route: 048
     Dates: start: 20160603
  9. PARACETAMOL [Concomitant]
     Active Substance: ACETAMINOPHEN
     Indication: CATHETER PLACEMENT
     Dosage: 50 MG, SINGLE
     Route: 042
     Dates: start: 20160612, end: 20160612
  10. NYSTATIN. [Concomitant]
     Active Substance: NYSTATIN
     Indication: SKIN ULCER
     Dosage: 1 DROP, QID
     Route: 061
     Dates: start: 20160613
  11. HEPARINIZED SALINE [Concomitant]
     Active Substance: HEPARIN SODIUM
     Indication: CATHETER PLACEMENT
     Dosage: 200 IU, PRN
     Route: 042
     Dates: start: 20160612
  12. SEBELIPASE ALFA [Suspect]
     Active Substance: SEBELIPASE ALFA
     Indication: LYSOSOMAL ACID LIPASE DEFICIENCY
     Dosage: 1 MG/KG, QW
     Route: 042
     Dates: start: 20160519, end: 20160608
  13. CHLORPHENAMINE [Concomitant]
     Active Substance: CHLORPHENIRAMINE MALEATE
     Indication: PROPHYLAXIS
     Dosage: 1.25 MG, SINGLE
     Route: 042
     Dates: start: 20160629, end: 20160629
  14. TEICOPLANIN [Concomitant]
     Active Substance: TEICOPLANIN
     Indication: CATHETER PLACEMENT
     Dosage: 52 MG, SINGLE
     Route: 042
     Dates: start: 20160612, end: 20160612
  15. SYTRON [Concomitant]
     Indication: SERUM FERRITIN DECREASED
     Dosage: 2.5 ML, BID
     Route: 048
     Dates: start: 20160528
  16. HYDROCORTISONE. [Concomitant]
     Active Substance: HYDROCORTISONE
     Indication: ANAPHYLACTIC REACTION
     Dosage: 25 MG, SINGLE
     Route: 042
     Dates: start: 20160622, end: 20160622
  17. RANITIDINE. [Concomitant]
     Active Substance: RANITIDINE
     Indication: REFLUX GASTRITIS
     Dosage: 10 MG, TID
     Route: 048
     Dates: start: 20160518
  18. DEXAMETHASONE. [Concomitant]
     Active Substance: DEXAMETHASONE
     Indication: CATHETER PLACEMENT
     Dosage: 0.8 MG, SINGLE
     Route: 042
     Dates: start: 20160612, end: 20160612
  19. ALFA-TOCOPHEROL ACETATE [Concomitant]
     Indication: VITAMIN E DEFICIENCY
     Dosage: 50 MG, QD
     Route: 048
     Dates: start: 20160527
  20. PARACETAMOL [Concomitant]
     Active Substance: ACETAMINOPHEN
     Indication: ANAPHYLACTIC REACTION
     Dosage: 60 MG, UNK
     Route: 048
     Dates: start: 20160622, end: 20160622
  21. NITROUS OXIDE W/OXYGEN [Concomitant]
     Active Substance: NITROUS OXIDE\OXYGEN
     Indication: CATHETER PLACEMENT
     Dosage: OTHER, SINGLE
     Route: 055
     Dates: start: 20160612, end: 20160612
  22. SEBELIPASE ALFA [Suspect]
     Active Substance: SEBELIPASE ALFA
     Dosage: 3 MG/KG, QW
     Route: 042
     Dates: start: 20160613
  23. ALFACALCIDOL [Concomitant]
     Active Substance: ALFACALCIDOL
     Indication: HYPOCALCAEMIA
     Dosage: 200 NG, QD
     Route: 048
     Dates: start: 20160527
  24. KAY CEE L [Concomitant]
     Indication: BLOOD POTASSIUM DECREASED
     Dosage: 5 MMOL, BID
     Route: 048
     Dates: start: 20160613, end: 20160624
  25. GAVISCON                           /00237601/ [Concomitant]
     Active Substance: ALUMINUM HYDROXIDE\MAGNESIUM CARBONATE
     Indication: REFLUX GASTRITIS
     Dosage: 1/2 SACHET, PRN
     Route: 048
     Dates: start: 20160518

REACTIONS (3)
  - Respiratory distress [Recovered/Resolved]
  - Anaphylactic reaction [Recovered/Resolved]
  - Tachycardia [Recovered/Resolved]

NARRATIVE: CASE EVENT DATE: 20160629
